FAERS Safety Report 5393099-X (Version None)
Quarter: 2007Q3

REPORT INFORMATION
  Report Type: 
  Country: None (occurrence: None)
  Receive Date: 20070718
  Receipt Date: 20070704
  Transmission Date: 20080115
  Serious: Yes (Death, Other)
  Sender: FDA-Public Use
  Company Number: 02100-EUR-07-0095

PATIENT
  Age: 57 Year
  Sex: Male

DRUGS (4)
  1. CILOSTAZOL [Suspect]
     Dosage: ORAL
     Route: 048
     Dates: start: 20061017, end: 20061022
  2. ATORVASTATIN CALCIUM [Concomitant]
  3. BRINZOLAMIDE [Concomitant]
  4. CARTEOLOL HYDROCHLORIDE [Concomitant]

REACTIONS (6)
  - DIZZINESS [None]
  - HAEMORRHAGE [None]
  - LIMB INJURY [None]
  - PALPITATIONS [None]
  - ROAD TRAFFIC ACCIDENT [None]
  - SYNCOPE [None]
